FAERS Safety Report 7810288-2 (Version None)
Quarter: 2011Q4

REPORT INFORMATION
  Report Type: 
  Country: None (occurrence: None)
  Receive Date: 20111012
  Receipt Date: 20111006
  Transmission Date: 20120403
  Serious: Yes (Other)
  Sender: FDA-Public Use
  Company Number: US-PFIZER INC-2011201428

PATIENT
  Sex: Female
  Weight: 63.5 kg

DRUGS (5)
  1. TRIAMTERENE [Concomitant]
     Dosage: UNK
  2. LAMICTAL [Concomitant]
     Indication: DEPRESSION
     Dosage: 100 MG
  3. PREMPRO [Suspect]
     Indication: HOT FLUSH
     Dosage: 0.625/5 MG, ONCE A DAY
     Route: 048
  4. EFFEXOR XR [Concomitant]
     Indication: DEPRESSION
     Dosage: 75 MG, 4X/DAY
     Route: 048
     Dates: start: 19920101
  5. NADOLOL [Concomitant]
     Indication: HEADACHE
     Dosage: 200 MG

REACTIONS (1)
  - AMNESIA [None]
